FAERS Safety Report 4831480-5 (Version None)
Quarter: 2005Q4

REPORT INFORMATION
  Report Type: 
  Country: None (occurrence: None)
  Receive Date: 20051118
  Receipt Date: 20051108
  Transmission Date: 20060501
  Serious: Yes (Hospitalization)
  Sender: FDA-Public Use
  Company Number: DE-JNJFOC-20050300601

PATIENT
  Age: 60 Year
  Sex: Female

DRUGS (14)
  1. INFLIXIMAB [Suspect]
     Route: 042
  2. INFLIXIMAB [Suspect]
     Indication: DRUG USE FOR UNKNOWN INDICATION
     Route: 042
  3. ENTOCORT [Concomitant]
  4. SALOFALK [Concomitant]
  5. OMEPRAZOLE [Concomitant]
  6. VIGANTOLETTEN [Concomitant]
  7. CALCIUM GLUCONATE [Concomitant]
  8. DIGIMERK [Concomitant]
  9. DELIX [Concomitant]
  10. CYNT [Concomitant]
  11. BEXTRA [Concomitant]
  12. LACTULOSE [Concomitant]
  13. OXIS [Concomitant]
  14. BRONCHORETARD [Concomitant]

REACTIONS (2)
  - EMBOLISM [None]
  - HYPERTENSIVE CRISIS [None]
